FAERS Safety Report 15351950 (Version 1)
Quarter: 2018Q3

REPORT INFORMATION
  Report Type: Spontaneous
  Country: UA (occurrence: UA)
  Receive Date: 20180905
  Receipt Date: 20180905
  Transmission Date: 20181010
  Serious: Yes (Life-Threatening, Other)
  Sender: FDA-Public Use
  Company Number: UA-ASTRAZENECA-2018SF10242

PATIENT
  Age: 23173 Day
  Sex: Male

DRUGS (6)
  1. ASPIRIN. [Concomitant]
     Active Substance: ASPIRIN
     Dosage: 100
  2. BRILINTA [Suspect]
     Active Substance: TICAGRELOR
     Indication: MYOCARDIAL INFARCTION
     Dosage: 90
     Route: 048
     Dates: start: 20180820, end: 20180825
  3. CLEXANE [Concomitant]
     Active Substance: ENOXAPARIN SODIUM
     Dosage: 1 MG PER KG OF BODY WEIGHT
  4. RAMIPRIL. [Concomitant]
     Active Substance: RAMIPRIL
  5. METOPROLOL. [Concomitant]
     Active Substance: METOPROLOL
  6. CLEXANE [Concomitant]
     Active Substance: ENOXAPARIN SODIUM
     Dosage: 0.4 MG PER KG OF BODY WEIGHT

REACTIONS (3)
  - Brain compression [Unknown]
  - Coma [Recovered/Resolved]
  - Haemorrhage intracranial [Unknown]

NARRATIVE: CASE EVENT DATE: 20180825
